FAERS Safety Report 7280672-7 (Version None)
Quarter: 2011Q1

REPORT INFORMATION
  Report Type: 
  Country: None (occurrence: None)
  Receive Date: 20110208
  Receipt Date: 20110131
  Transmission Date: 20110831
  Serious: Yes (Life-Threatening, Hospitalization, Other)
  Sender: FDA-Public Use
  Company Number: A0903330A

PATIENT
  Age: 16 Year
  Sex: Male
  Weight: 65 kg

DRUGS (3)
  1. LAMICTAL [Suspect]
     Indication: BIPOLAR DISORDER
     Route: 048
     Dates: start: 20101123, end: 20101224
  2. NO CONCURRENT MEDICATION [Concomitant]
  3. PENICILLIN [Suspect]
     Indication: STREPTOCOCCAL INFECTION
     Route: 065

REACTIONS (2)
  - RASH [None]
  - RASH VESICULAR [None]
